FAERS Safety Report 22773536 (Version 6)
Quarter: 2024Q4

REPORT INFORMATION
  Report Type: Spontaneous
  Country: JP (occurrence: JP)
  Receive Date: 20230801
  Receipt Date: 20241104
  Transmission Date: 20250115
  Serious: Yes (Life-Threatening, Hospitalization, Other)
  Sender: ALEXION PHARMACEUTICALS
  Company Number: 2023A171952

PATIENT
  Age: 77 Year
  Weight: 55 kg

DRUGS (22)
  1. IMFINZI [Suspect]
     Active Substance: DURVALUMAB
     Indication: Hepatocellular carcinoma
     Dosage: DOSE UNKNOWN
  2. IMFINZI [Suspect]
     Active Substance: DURVALUMAB
     Dosage: DOSE UNKNOWN
  3. IMFINZI [Suspect]
     Active Substance: DURVALUMAB
     Dosage: DOSE UNKNOWN
  4. IMFINZI [Suspect]
     Active Substance: DURVALUMAB
     Dosage: DOSE UNKNOWN
  5. IMJUDO [Suspect]
     Active Substance: TREMELIMUMAB\TREMELIMUMAB-ACTL
     Indication: Hepatocellular carcinoma
     Dosage: DOSE UNKNOWN
  6. IMJUDO [Suspect]
     Active Substance: TREMELIMUMAB\TREMELIMUMAB-ACTL
     Dosage: DOSE UNKNOWN
  7. IMJUDO [Suspect]
     Active Substance: TREMELIMUMAB\TREMELIMUMAB-ACTL
     Dosage: DOSE UNKNOWN
  8. IMJUDO [Suspect]
     Active Substance: TREMELIMUMAB\TREMELIMUMAB-ACTL
     Dosage: DOSE UNKNOWN
  9. METGLUCO [Concomitant]
     Active Substance: METFORMIN HYDROCHLORIDE
     Dosage: DOSE UNKNOWN
  10. METGLUCO [Concomitant]
     Active Substance: METFORMIN HYDROCHLORIDE
     Dosage: DOSE UNKNOWN
  11. METGLUCO [Concomitant]
     Active Substance: METFORMIN HYDROCHLORIDE
     Dosage: DOSE UNKNOWN
     Route: 065
  12. METGLUCO [Concomitant]
     Active Substance: METFORMIN HYDROCHLORIDE
     Dosage: DOSE UNKNOWN
  13. METGLUCO [Concomitant]
     Active Substance: METFORMIN HYDROCHLORIDE
     Dosage: DOSE UNKNOWN
     Route: 065
  14. METGLUCO [Concomitant]
     Active Substance: METFORMIN HYDROCHLORIDE
     Dosage: DOSE UNKNOWN
  15. EPLERENONE [Concomitant]
     Active Substance: EPLERENONE
     Indication: Hypertension
     Dosage: IN THE MORNING
  16. EPLERENONE [Concomitant]
     Active Substance: EPLERENONE
     Dosage: IN THE MORNING
  17. EPLERENONE [Concomitant]
     Active Substance: EPLERENONE
     Dosage: IN THE MORNING
  18. EPLERENONE [Concomitant]
     Active Substance: EPLERENONE
     Dosage: IN THE MORNING
  19. CADUET [Concomitant]
     Active Substance: AMLODIPINE BESYLATE\ATORVASTATIN CALCIUM
     Indication: Hypertension
     Dosage: AMLODIPINE (AMLODIPINE BESILATE) 5 MG, ATORVASTATIN (ATORVASTATIN CALCIUM HYDRATE) 10 MG, IN THE MOR
  20. CADUET [Concomitant]
     Active Substance: AMLODIPINE BESYLATE\ATORVASTATIN CALCIUM
     Dosage: AMLODIPINE (AMLODIPINE BESILATE) 5 MG, ATORVASTATIN (ATORVASTATIN CALCIUM HYDRATE) 10 MG, IN THE MOR
  21. METFORMIN HYDROCHLORIDE\VILDAGLIPTIN [Concomitant]
     Active Substance: METFORMIN HYDROCHLORIDE\VILDAGLIPTIN
     Indication: Type 2 diabetes mellitus
     Dosage: VILDAGLIPTIN 50 MG/METFORMIN HYDROCHLORIDE 500 MG
  22. METFORMIN HYDROCHLORIDE\VILDAGLIPTIN [Concomitant]
     Active Substance: METFORMIN HYDROCHLORIDE\VILDAGLIPTIN
     Dosage: VILDAGLIPTIN 50 MG/METFORMIN HYDROCHLORIDE 500 MG

REACTIONS (9)
  - Fulminant type 1 diabetes mellitus [Recovered/Resolved with Sequelae]
  - Myositis [Recovered/Resolved]
  - Renal failure [Recovering/Resolving]
  - Metabolic acidosis [Recovering/Resolving]
  - Hepatitis [Recovered/Resolved]
  - Pancreatitis [Recovered/Resolved]
  - Rhabdomyolysis [Recovered/Resolved]
  - Hepatic steatosis [Recovered/Resolved]
  - Multi-organ disorder [Recovering/Resolving]
